FAERS Safety Report 9176327 (Version 1)
Quarter: 2013Q1

REPORT INFORMATION
  Report Type: Spontaneous
  Country: US (occurrence: US)
  Receive Date: 20130321
  Receipt Date: 20130321
  Transmission Date: 20140127
  Serious: No
  Sender: FDA-Public Use
  Company Number: US-BIOGENIDEC-2013BI024489

PATIENT
  Age: 64 Year
  Sex: Female

DRUGS (2)
  1. TYSABRI [Suspect]
     Indication: MULTIPLE SCLEROSIS
     Route: 042
  2. TYSABRI [Suspect]
     Indication: MULTIPLE SCLEROSIS
     Route: 042
     Dates: start: 20120524

REACTIONS (8)
  - Joint injury [Not Recovered/Not Resolved]
  - Back injury [Not Recovered/Not Resolved]
  - Contusion [Not Recovered/Not Resolved]
  - Gait disturbance [Recovered/Resolved]
  - Visual impairment [Recovered/Resolved]
  - White blood cells stool positive [Recovered/Resolved]
  - Tendonitis [Unknown]
  - Infection [Recovered/Resolved]
